FAERS Safety Report 10551332 (Version 1)
Quarter: 2014Q4

REPORT INFORMATION
  Report Type: Spontaneous
  Country: US (occurrence: US)
  Receive Date: 20141029
  Receipt Date: 20141029
  Transmission Date: 20150529
  Serious: Yes (Hospitalization, Other)
  Sender: FDA-Public Use
  Company Number: US-ELI_LILLY_AND_COMPANY-US201410008254

PATIENT
  Sex: Female

DRUGS (1)
  1. HUMULIN L [Suspect]
     Active Substance: INSULIN HUMAN
     Indication: TYPE 1 DIABETES MELLITUS
     Dosage: UNK
     Route: 065
     Dates: start: 1967

REACTIONS (4)
  - Shock hypoglycaemic [Unknown]
  - Maternal exposure during pregnancy [Recovered/Resolved]
  - Acidosis [Unknown]
  - Coma [Unknown]

NARRATIVE: CASE EVENT DATE: 1970
